FAERS Safety Report 14068606 (Version 1)
Quarter: 2017Q4

REPORT INFORMATION
  Report Type: Spontaneous
  Country: US (occurrence: US)
  Receive Date: 20171010
  Receipt Date: 20171010
  Transmission Date: 20180321
  Serious: Yes (Life-Threatening, Hospitalization)
  Sender: FDA-Public Use
  Company Number: None

PATIENT
  Age: 49 Year
  Sex: Female

DRUGS (1)
  1. LUCENTIS [Suspect]
     Active Substance: RANIBIZUMAB
     Indication: RETINAL VEIN OCCLUSION
     Route: 031

REACTIONS (5)
  - Nausea [None]
  - Atrial fibrillation [None]
  - Fall [None]
  - Loss of consciousness [None]
  - Palpitations [None]

NARRATIVE: CASE EVENT DATE: 20170912
